FAERS Safety Report 21792283 (Version 2)
Quarter: 2023Q1

REPORT INFORMATION
  Report Type: Spontaneous
  Country: US (occurrence: US)
  Receive Date: 20221229
  Receipt Date: 20230301
  Transmission Date: 20230418
  Serious: Yes (Other)
  Sender: FDA-Public Use
  Company Number: US-JNJFOC-20221249608

PATIENT
  Sex: Female

DRUGS (1)
  1. REMICADE [Suspect]
     Active Substance: INFLIXIMAB
     Indication: Product use in unapproved indication
     Route: 041

REACTIONS (5)
  - Respiratory distress [Recovered/Resolved]
  - Burning sensation [Unknown]
  - Dysphagia [Unknown]
  - Upper-airway cough syndrome [Unknown]
  - Accidental exposure to product [Unknown]

NARRATIVE: CASE EVENT DATE: 20220831
